FAERS Safety Report 18633676 (Version 1)
Quarter: 2020Q4

REPORT INFORMATION
  Report Type: Report from Study
  Country: CA (occurrence: CA)
  Receive Date: 20201218
  Receipt Date: 20201218
  Transmission Date: 20210114
  Serious: Yes (Hospitalization)
  Sender: FDA-Public Use
  Company Number: CA-JNJFOC-20201223570

PATIENT
  Age: 60 Year
  Sex: Male

DRUGS (1)
  1. STELARA [Suspect]
     Active Substance: USTEKINUMAB
     Indication: CROHN^S DISEASE
     Route: 058

REACTIONS (3)
  - Oedema [Unknown]
  - Peripheral swelling [Unknown]
  - Ultrasound scan abnormal [Unknown]

NARRATIVE: CASE EVENT DATE: 20201204
